FAERS Safety Report 5896432-5 (Version None)
Quarter: 2008Q3

REPORT INFORMATION
  Report Type: 
  Country: None (occurrence: None)
  Receive Date: 20080924
  Receipt Date: 20070703
  Transmission Date: 20090109
  Serious: Yes (Other)
  Sender: FDA-Public Use
  Company Number: US-BAYER-200711769BWH

PATIENT
  Age: 59 Year
  Sex: Male

DRUGS (3)
  1. AVELOX [Suspect]
     Indication: ACUTE SINUSITIS
     Dosage: TOTAL DAILY DOSE: 400 MG  UNIT DOSE: 400 MG
     Route: 048
     Dates: start: 20070529
  2. ZOCOR [Concomitant]
  3. PROBENECID [Concomitant]

REACTIONS (5)
  - ANAPHYLACTIC SHOCK [None]
  - DYSPNOEA [None]
  - ERYTHEMA [None]
  - LOSS OF CONSCIOUSNESS [None]
  - SWELLING FACE [None]
